FAERS Safety Report 10471366 (Version 3)
Quarter: 2014Q4

REPORT INFORMATION
  Report Type: Spontaneous
  Country: US (occurrence: US)
  Receive Date: 20140923
  Receipt Date: 20141230
  Transmission Date: 20150528
  Serious: Yes (Other)
  Sender: FDA-Public Use
  Company Number: US-PFIZER INC-2014261650

PATIENT
  Age: 33 Year
  Sex: Female

DRUGS (1)
  1. XELJANZ [Suspect]
     Active Substance: TOFACITINIB CITRATE
     Indication: RHEUMATOID ARTHRITIS
     Dosage: 5MG (STRENGTH: 5MG) TWICE DAILY
     Route: 048
     Dates: start: 20140407

REACTIONS (7)
  - Memory impairment [Unknown]
  - Malaise [Unknown]
  - Drug dose omission [Unknown]
  - Pyrexia [Unknown]
  - Food allergy [Unknown]
  - Aphthous stomatitis [Unknown]
  - Influenza like illness [Unknown]

NARRATIVE: CASE EVENT DATE: 20140918
